FAERS Safety Report 6841307-8 (Version None)
Quarter: 2010Q3

REPORT INFORMATION
  Report Type: 
  Country: None (occurrence: None)
  Receive Date: 20100714
  Receipt Date: 20070822
  Transmission Date: 20110219
  Serious: No
  Sender: FDA-Public Use
  Company Number: US-PFIZER INC-2007052650

PATIENT
  Sex: Female
  Weight: 54.9 kg

DRUGS (7)
  1. CHANTIX [Suspect]
     Indication: SMOKING CESSATION THERAPY
     Route: 048
     Dates: start: 20070606
  2. ACTIVELLA [Concomitant]
     Route: 048
  3. HYZAAR [Concomitant]
     Route: 048
  4. ATENOLOL [Concomitant]
     Route: 048
  5. PRAVACHOL [Concomitant]
     Route: 048
  6. PAXIL [Concomitant]
     Route: 048
  7. ACETYLSALICYLIC ACID [Concomitant]
     Route: 048

REACTIONS (3)
  - ABNORMAL DREAMS [None]
  - INCORRECT DOSE ADMINISTERED [None]
  - NAUSEA [None]
